FAERS Safety Report 6035268-1 (Version None)
Quarter: 2009Q1

REPORT INFORMATION
  Report Type: 
  Country: None (occurrence: None)
  Receive Date: 20090109
  Receipt Date: 20081230
  Transmission Date: 20090719
  Serious: Yes (Other)
  Sender: FDA-Public Use
  Company Number: 233372K08USA

PATIENT
  Age: 60 Year
  Sex: Male

DRUGS (7)
  1. REBIF [Suspect]
     Indication: MULTIPLE SCLEROSIS
     Dosage: 44 MCG, 3 IN 1 WEEKS, SUBCUTANEOUS
     Route: 058
     Dates: start: 20060301, end: 20080701
  2. REBIF [Suspect]
     Indication: MULTIPLE SCLEROSIS
     Dosage: 44 MCG, 3 IN 1 WEEKS, SUBCUTANEOUS
     Route: 058
     Dates: start: 20080801
  3. SIMVASTATIN [Concomitant]
  4. MODAFINIL [Concomitant]
  5. MECLIZINE [Concomitant]
  6. FLONASE [Concomitant]
  7. UNSPECIFIED MEDICATION        (ALL OTHER THERAPEUTIC PRODUCTS) [Concomitant]

REACTIONS (4)
  - DIABETES MELLITUS [None]
  - DRUG HYPERSENSITIVITY [None]
  - GLYCOSYLATED HAEMOGLOBIN INCREASED [None]
  - STAPHYLOCOCCAL INFECTION [None]
